FAERS Safety Report 11661968 (Version 1)
Quarter: 2015Q4

REPORT INFORMATION
  Report Type: Spontaneous
  Country: US (occurrence: None)
  Receive Date: 20151026
  Receipt Date: 20151026
  Transmission Date: 20160304
  Serious: Yes (Other)
  Sender: FDA-Public Use
  Company Number: US-MDT-ADR-2015-02029

PATIENT
  Age: 76 Year
  Sex: Male

DRUGS (2)
  1. BACLOFEN INTRATHECAL 150 MCG/ML [Suspect]
     Active Substance: BACLOFEN
     Indication: BACK PAIN
     Dosage: 35.99 MCG/DAY
  2. DILAUDID [Suspect]
     Active Substance: HYDROMORPHONE HYDROCHLORIDE
     Indication: BACK PAIN
     Dosage: 3.59 MG/DAY

REACTIONS (4)
  - Pain in extremity [None]
  - Wheezing [None]
  - Pneumonia [None]
  - Back pain [None]
